FAERS Safety Report 6243277-2 (Version None)
Quarter: 2009Q2

REPORT INFORMATION
  Report Type: 
  Country: None (occurrence: None)
  Receive Date: 20090624
  Receipt Date: 20090611
  Transmission Date: 20091009
  Serious: Yes (Hospitalization)
  Sender: FDA-Public Use
  Company Number: PHHY2009IE21545

PATIENT
  Sex: Male

DRUGS (3)
  1. CLOZARIL [Suspect]
     Indication: SCHIZOPHRENIA
     Dosage: UNK
     Dates: start: 20090303
  2. DIAZEPAM [Concomitant]
     Indication: ANXIETY
     Dosage: 2 MG, BID
     Route: 048
  3. EFFEXOR XR [Concomitant]
     Indication: DEPRESSION
     Dosage: 225 MG DAILY
     Route: 048

REACTIONS (2)
  - ANKLE FRACTURE [None]
  - FALL [None]
